FAERS Safety Report 10361410 (Version 3)
Quarter: 2014Q3

REPORT INFORMATION
  Report Type: Spontaneous
  Country: US (occurrence: US)
  Receive Date: 20140805
  Receipt Date: 20140919
  Transmission Date: 20150326
  Serious: Yes (Hospitalization, Other)
  Sender: FDA-Public Use
  Company Number: US-ROCHE-1440653

PATIENT
  Sex: Female

DRUGS (2)
  1. KLONOPIN [Suspect]
     Active Substance: CLONAZEPAM
     Indication: CONVULSION
     Route: 065
  2. DEPAKOTE [Concomitant]
     Active Substance: DIVALPROEX SODIUM
     Indication: CONVULSION

REACTIONS (7)
  - Incorrect dose administered [Unknown]
  - Swelling face [Unknown]
  - Dyspnoea [Unknown]
  - Drug withdrawal syndrome [Unknown]
  - Malaise [Unknown]
  - Convulsion [Not Recovered/Not Resolved]
  - Anaphylactic shock [Unknown]
